FAERS Safety Report 11450141 (Version 2)
Quarter: 2015Q3

REPORT INFORMATION
  Report Type: Report from Study
  Country: US (occurrence: US)
  Receive Date: 20150903
  Receipt Date: 20150929
  Transmission Date: 20151125
  Serious: Yes (Other)
  Sender: FDA-Public Use
  Company Number: US-GILEAD-2015-0169823

PATIENT
  Age: 87 Year
  Sex: Female

DRUGS (1)
  1. AMBRISENTAN [Suspect]
     Active Substance: AMBRISENTAN
     Indication: PRODUCT USED FOR UNKNOWN INDICATION
     Dosage: 5 MG, QD
     Route: 065
     Dates: start: 20141124

REACTIONS (6)
  - Hypotension [Unknown]
  - Contusion [Unknown]
  - Hypoaesthesia [Unknown]
  - Cardiac failure congestive [Unknown]
  - Herpes zoster [Recovered/Resolved]
  - Oedema [Unknown]
